FAERS Safety Report 19936692 (Version 2)
Quarter: 2021Q4

REPORT INFORMATION
  Report Type: Report from Study
  Country: US (occurrence: US)
  Receive Date: 20211009
  Receipt Date: 20211018
  Transmission Date: 20220303
  Serious: Yes (Other)
  Sender: FDA-Public Use
  Company Number: NVSC2020US225712

PATIENT
  Age: 60 Year
  Sex: Female
  Weight: 93.42 kg

DRUGS (1)
  1. COSENTYX [Suspect]
     Active Substance: SECUKINUMAB
     Indication: Psoriasis
     Dosage: 300 MG, QMO
     Route: 065
     Dates: start: 20200127, end: 20200307

REACTIONS (4)
  - Hypersensitivity [Recovered/Resolved]
  - Angioedema [Unknown]
  - Urticaria [Unknown]
  - Rash [Unknown]
